APPROVED DRUG PRODUCT: ROPINIROLE HYDROCHLORIDE
Active Ingredient: ROPINIROLE HYDROCHLORIDE
Strength: EQ 12MG BASE
Dosage Form/Route: TABLET, EXTENDED RELEASE;ORAL
Application: A217862 | Product #005 | TE Code: AB
Applicant: ELITE LABORATORIES INC
Approved: Nov 10, 2025 | RLD: No | RS: No | Type: RX